FAERS Safety Report 15473795 (Version 1)
Quarter: 2018Q4

REPORT INFORMATION
  Report Type: Spontaneous
  Country: TR (occurrence: TR)
  Receive Date: 20181008
  Receipt Date: 20181008
  Transmission Date: 20190205
  Serious: Yes (Life-Threatening, Hospitalization, Other)
  Sender: FDA-Public Use
  Company Number: TR-B.I. PHARMACEUTICALS,INC./RIDGEFIELD-2018-BI-049469

PATIENT
  Age: 68 Year
  Sex: Female

DRUGS (3)
  1. MOBIC [Suspect]
     Active Substance: MELOXICAM
     Indication: BACK PAIN
     Route: 065
  2. TENOXICAM [Suspect]
     Active Substance: TENOXICAM
     Indication: BACK PAIN
     Route: 030
  3. ETODOLAC. [Suspect]
     Active Substance: ETODOLAC
     Indication: BACK PAIN
     Route: 065

REACTIONS (2)
  - Anaphylactic reaction [Unknown]
  - Acute respiratory distress syndrome [Unknown]
